FAERS Safety Report 8607727-6 (Version None)
Quarter: 2012Q3

REPORT INFORMATION
  Report Type: 
  Country: None (occurrence: None)
  Receive Date: 20120821
  Receipt Date: 20120815
  Transmission Date: 20120928
  Serious: Yes (Hospitalization, Other)
  Sender: FDA-Public Use
  Company Number: US-PFIZER INC-2012200070

PATIENT
  Age: 51 Year
  Sex: Female
  Weight: 47.619 kg

DRUGS (2)
  1. COUMADIN [Interacting]
     Indication: ANTICOAGULANT THERAPY
     Dosage: 2.5 MG, 1X/DAY ONE AND HALF TABLET
     Route: 048
     Dates: start: 20120201
  2. VFEND [Suspect]
     Indication: PULMONARY MYCOSIS
     Dosage: 300 MG, 2X/DAY
     Dates: start: 20120201

REACTIONS (5)
  - DRUG INTERACTION [None]
  - PNEUMONIA [None]
  - PYREXIA [None]
  - INTERNATIONAL NORMALISED RATIO INCREASED [None]
  - BLOOD DISORDER [None]
